FAERS Safety Report 17839094 (Version 1)
Quarter: 2020Q2

REPORT INFORMATION
  Report Type: Spontaneous
  Country: IT (occurrence: IT)
  Receive Date: 20200529
  Receipt Date: 20200529
  Transmission Date: 20200714
  Serious: Yes (Other)
  Sender: FDA-Public Use
  Company Number: IT-AUROBINDO-AUR-APL-2020-021529

PATIENT
  Age: 43 Year
  Sex: Male

DRUGS (8)
  1. GEMCITABINE. [Suspect]
     Active Substance: GEMCITABINE
     Indication: ACINAR CELL CARCINOMA OF PANCREAS
     Dosage: 1000 MILLIGRAM/SQ. METER, IN A 14-D CYCLE
     Route: 065
  2. OXALIPLATIN. [Suspect]
     Active Substance: OXALIPLATIN
     Indication: PANCREATIC CARCINOMA
     Dosage: 100 MILLIGRAM/SQ. METER, IN A 14-D CYCLE
     Route: 065
  3. GEMCITABINE. [Suspect]
     Active Substance: GEMCITABINE
     Dosage: UNK, ANOTHER FOUR CYCLES OF CAPECITABINE UNTIL NOV/2012
     Route: 065
     Dates: end: 201211
  4. CAPECITABINE. [Suspect]
     Active Substance: CAPECITABINE
     Indication: ACINAR CELL CARCINOMA OF PANCREAS
     Dosage: 1300 MILLIGRAM/SQ. METER, FOR 14 DAY
     Route: 065
     Dates: start: 201001, end: 201204
  5. CAPECITABINE. [Suspect]
     Active Substance: CAPECITABINE
     Indication: PANCREATIC CARCINOMA
     Dosage: UNK, ANOTHER FOUR CYCLES OF CAPECITABINE UNTIL NOV/2012
     Route: 065
     Dates: end: 201211
  6. CAPECITABINE. [Suspect]
     Active Substance: CAPECITABINE
     Dosage: UNK, RESTARTED TREATMENT
     Route: 065
     Dates: start: 201303
  7. GEMCITABINE. [Suspect]
     Active Substance: GEMCITABINE
     Indication: PANCREATIC CARCINOMA
     Dosage: 1000 MILLIGRAM/SQ. METER, ON DAYS 1 AND 8
     Route: 065
     Dates: start: 201001, end: 201204
  8. GEMCITABINE. [Suspect]
     Active Substance: GEMCITABINE
     Dosage: UNK, RESTARTED TREATMENT
     Route: 065
     Dates: start: 201303

REACTIONS (5)
  - Anaemia [Unknown]
  - Therapy partial responder [Unknown]
  - Disease progression [Unknown]
  - Neutropenia [Unknown]
  - Disease recurrence [Unknown]
